FAERS Safety Report 5315616-8 (Version None)
Quarter: 2007Q2

REPORT INFORMATION
  Report Type: 
  Country: None (occurrence: None)
  Receive Date: 20070503
  Receipt Date: 20070426
  Transmission Date: 20071010
  Serious: Yes (Other)
  Sender: FDA-Public Use
  Company Number: 2006AP05953

PATIENT
  Age: 78 Year
  Sex: Female
  Weight: 46.9 kg

DRUGS (10)
  1. IRESSA [Suspect]
     Indication: NON-SMALL CELL LUNG CANCER
     Route: 048
     Dates: start: 20031201, end: 20040201
  2. IRESSA [Suspect]
     Indication: LUNG ADENOCARCINOMA
     Route: 048
     Dates: start: 20031201, end: 20040201
  3. IRESSA [Suspect]
     Route: 048
  4. IRESSA [Suspect]
     Route: 048
  5. IRESSA [Suspect]
     Route: 048
  6. IRESSA [Suspect]
     Route: 048
  7. IRESSA [Suspect]
     Route: 048
     Dates: start: 20061113, end: 20070202
  8. IRESSA [Suspect]
     Route: 048
     Dates: start: 20061113, end: 20070202
  9. IRESSA [Suspect]
     Route: 048
     Dates: start: 20070309
  10. IRESSA [Suspect]
     Route: 048
     Dates: start: 20070309

REACTIONS (2)
  - HEPATIC FUNCTION ABNORMAL [None]
  - LIVER DISORDER [None]
